FAERS Safety Report 25691287 (Version 1)
Quarter: 2025Q3

REPORT INFORMATION
  Report Type: Spontaneous
  Country: US (occurrence: US)
  Receive Date: 20250818
  Receipt Date: 20250818
  Transmission Date: 20251021
  Serious: Yes (Other)
  Sender: UNITED THERAPEUTICS
  Company Number: US-UNITED THERAPEUTICS-UNT-2025-028271

PATIENT
  Age: 61 Year
  Sex: Female

DRUGS (9)
  1. REMODULIN [Suspect]
     Active Substance: TREPROSTINIL
     Indication: Pulmonary arterial hypertension
     Route: 041
  2. SOTATERCEPT [Suspect]
     Active Substance: SOTATERCEPT
     Indication: Pulmonary arterial hypertension
  3. SOTATERCEPT [Suspect]
     Active Substance: SOTATERCEPT
  4. SOTATERCEPT [Suspect]
     Active Substance: SOTATERCEPT
  5. SOTATERCEPT [Suspect]
     Active Substance: SOTATERCEPT
  6. SOTATERCEPT [Suspect]
     Active Substance: SOTATERCEPT
  7. SOTATERCEPT [Suspect]
     Active Substance: SOTATERCEPT
  8. SOTATERCEPT [Suspect]
     Active Substance: SOTATERCEPT
  9. SILDENAFIL [Concomitant]
     Active Substance: SILDENAFIL
     Indication: Pulmonary arterial hypertension

REACTIONS (1)
  - Pericardial effusion [Unknown]
